FAERS Safety Report 10982448 (Version 1)
Quarter: 2015Q2

REPORT INFORMATION
  Report Type: Spontaneous
  Country: US (occurrence: None)
  Receive Date: 20150402
  Receipt Date: 20150402
  Transmission Date: 20150821
  Serious: Yes (Hospitalization)
  Sender: FDA-Public Use
  Company Number: None

PATIENT
  Age: 92 Year
  Sex: Female
  Weight: 51 kg

DRUGS (3)
  1. NICARDIPINE [Concomitant]
     Active Substance: NICARDIPINE
  2. ALTEPLASE [Suspect]
     Active Substance: ALTEPLASE
     Indication: CEREBROVASCULAR ACCIDENT
     Route: 042
     Dates: start: 20150329
  3. LABETALOL [Concomitant]
     Active Substance: LABETALOL\LABETALOL HYDROCHLORIDE

REACTIONS (4)
  - Ecchymosis [None]
  - Infusion site erythema [None]
  - Subcutaneous haematoma [None]
  - Infusion site pruritus [None]

NARRATIVE: CASE EVENT DATE: 20150329
